FAERS Safety Report 13418593 (Version 2)
Quarter: 2017Q2

REPORT INFORMATION
  Report Type: Report from Study
  Country: DE (occurrence: DE)
  Receive Date: 20170406
  Receipt Date: 20170413
  Transmission Date: 20170830
  Serious: Yes (Hospitalization, Other)
  Sender: FDA-Public Use
  Company Number: DE-SEATTLE GENETICS-2017SGN00669

PATIENT

DRUGS (25)
  1. PANTOZOL [Concomitant]
     Active Substance: PANTOPRAZOLE SODIUM
     Dosage: 6 MG, UNK
     Route: 065
     Dates: start: 20170306, end: 20170306
  2. DEXAMETHASONE. [Suspect]
     Active Substance: DEXAMETHASONE
     Indication: HODGKIN^S DISEASE
     Dosage: 160 MG/M2, UNK
     Route: 065
     Dates: start: 20170303, end: 20170325
  3. NEURONTIN [Concomitant]
     Active Substance: GABAPENTIN
     Dosage: 6 MG, UNK
     Dates: start: 20170306, end: 20170325
  4. TAVANIC SPECIFIC [Concomitant]
     Dosage: 500 MG, BID
     Route: 065
     Dates: start: 20170307, end: 20170329
  5. COTRIM [Concomitant]
     Active Substance: SULFAMETHOXAZOLE\TRIMETHOPRIM
     Dosage: 960 MG, UNK
  6. KEVATRIL [Concomitant]
     Active Substance: GRANISETRON HYDROCHLORIDE
     Dosage: 2 MG, QD
     Route: 065
     Dates: start: 20170303, end: 20170324
  7. COTRIM [Concomitant]
     Active Substance: SULFAMETHOXAZOLE\TRIMETHOPRIM
     Dosage: 960 MG, UNK
  8. COTRIM [Concomitant]
     Active Substance: SULFAMETHOXAZOLE\TRIMETHOPRIM
     Route: 065
  9. BRENTUXIMAB VEDOTIN [Suspect]
     Active Substance: BRENTUXIMAB VEDOTIN
     Indication: HODGKIN^S DISEASE
     Dosage: 1.8 MG/KG, UNK
     Route: 065
     Dates: start: 20170302, end: 20170321
  10. DACARBAZINE. [Suspect]
     Active Substance: DACARBAZINE
     Indication: HODGKIN^S DISEASE
     Dosage: 500 MG/M2, UNK
     Route: 065
     Dates: start: 20170304, end: 20170324
  11. EMEND [Concomitant]
     Active Substance: APREPITANT
     Dosage: 80 MG, UNK
     Route: 065
     Dates: start: 20170304, end: 20170305
  12. EMEND [Concomitant]
     Active Substance: APREPITANT
     Dosage: 125 MG, UNK
     Route: 065
     Dates: start: 20170303, end: 20170322
  13. MESNA. [Concomitant]
     Active Substance: MESNA
     Dosage: 800 MG, UNK
     Route: 065
     Dates: start: 20170303, end: 20170322
  14. CYCLOPHOSPHAMIDE. [Suspect]
     Active Substance: CYCLOPHOSPHAMIDE
     Indication: HODGKIN^S DISEASE
     Dosage: 1250 MG/M2, UNK
     Route: 065
     Dates: start: 20170303, end: 20170322
  15. ETOPOSIDE. [Suspect]
     Active Substance: ETOPOSIDE
     Indication: HODGKIN^S DISEASE
     Dosage: 450 MG/M2, UNK
     Route: 065
     Dates: start: 20170303, end: 20170324
  16. PANTOZOL [Concomitant]
     Active Substance: PANTOPRAZOLE SODIUM
     Dosage: 40 MG, QD
     Route: 065
  17. DOXORUBICIN [Suspect]
     Active Substance: DOXORUBICIN
     Indication: HODGKIN^S DISEASE
     Dosage: 40 MG/M2, UNK
     Route: 065
     Dates: start: 20170303, end: 20170322
  18. EMEND [Concomitant]
     Active Substance: APREPITANT
     Dosage: 80 MG, UNK
     Route: 065
     Dates: start: 20170304, end: 20170324
  19. MESNA. [Concomitant]
     Active Substance: MESNA
     Dosage: 800 MG, UNK
     Dates: start: 20170303, end: 20170303
  20. MESNA. [Concomitant]
     Active Substance: MESNA
     Dosage: 800 MG, UNK
     Dates: start: 20170303, end: 20170303
  21. KEVATRIL [Concomitant]
     Active Substance: GRANISETRON HYDROCHLORIDE
     Dosage: 2 MG, UNK
     Dates: start: 20170303, end: 20170305
  22. NEURONTIN [Concomitant]
     Active Substance: GABAPENTIN
     Dosage: 6 MG, UNK
     Dates: start: 20170306, end: 20170306
  23. EMEND [Concomitant]
     Active Substance: APREPITANT
     Dosage: 125 MG, UNK
     Route: 065
     Dates: start: 20170303, end: 20170303
  24. TAVANIC SPECIFIC [Concomitant]
     Dosage: 500 MG, UNK
     Dates: start: 20170307, end: 20170312
  25. BRENTUXIMAB VEDOTIN [Suspect]
     Active Substance: BRENTUXIMAB VEDOTIN
     Indication: HODGKIN^S DISEASE

REACTIONS (3)
  - Febrile neutropenia [Recovered/Resolved]
  - Generalised tonic-clonic seizure [Recovered/Resolved]
  - Febrile neutropenia [Recovered/Resolved]

NARRATIVE: CASE EVENT DATE: 20170312
